FAERS Safety Report 19185188 (Version 1)
Quarter: 2021Q2

REPORT INFORMATION
  Report Type: Spontaneous
  Country: CA (occurrence: CA)
  Receive Date: 20210427
  Receipt Date: 20210427
  Transmission Date: 20210717
  Serious: Yes (Hospitalization)
  Sender: FDA-Public Use
  Company Number: NVSC2021CA089414

PATIENT
  Age: 50 Year
  Sex: Male
  Weight: 96 kg

DRUGS (1)
  1. HEPARIN SODIUM INJECTION USP [Suspect]
     Active Substance: HEPARIN SODIUM
     Indication: THROMBOSIS PROPHYLAXIS
     Dosage: 5000 IU, Q12H (SINGLE DOSE PREFILLED SYRINGE)
     Route: 058

REACTIONS (2)
  - Heparin-induced thrombocytopenia [Recovered/Resolved]
  - Injection site necrosis [Recovered/Resolved]
